FAERS Safety Report 9054679 (Version 1)
Quarter: 2013Q1

REPORT INFORMATION
  Report Type: Spontaneous
  Country: FR (occurrence: FR)
  Receive Date: 20130208
  Receipt Date: 20130208
  Transmission Date: 20140127
  Serious: Yes (Other)
  Sender: FDA-Public Use
  Company Number: FR-JNJFOC-20130200137

PATIENT
  Age: 53 Year
  Sex: Female

DRUGS (8)
  1. REMICADE [Suspect]
     Indication: PRODUCT USED FOR UNKNOWN INDICATION
     Dosage: 280 MG/CYCLE
     Route: 042
     Dates: start: 20120109
  2. REMICADE [Suspect]
     Indication: PRODUCT USED FOR UNKNOWN INDICATION
     Dosage: 280 MG/INFUSION
     Route: 042
     Dates: start: 20120827
  3. REMICADE [Suspect]
     Indication: PRODUCT USED FOR UNKNOWN INDICATION
     Dosage: LAST INFUSION
     Route: 042
     Dates: start: 20120704
  4. METHOTREXATE [Concomitant]
     Route: 065
  5. CORTANCYL [Concomitant]
     Route: 065
  6. SPECIAFOLDINE [Concomitant]
     Route: 065
  7. FOSAVANCE [Concomitant]
     Route: 065
  8. TORENTAL [Concomitant]
     Route: 065

REACTIONS (7)
  - Infusion related reaction [Recovered/Resolved]
  - Dyspnoea [Recovered/Resolved]
  - Pruritus [Recovered/Resolved]
  - Abdominal pain [Recovered/Resolved]
  - Vomiting [Recovered/Resolved]
  - Paraesthesia [Recovered/Resolved]
  - Chest pain [Recovered/Resolved]
